FAERS Safety Report 4366353-8 (Version None)
Quarter: 2004Q2

REPORT INFORMATION
  Report Type: 
  Country: None (occurrence: None)
  Receive Date: 20040527
  Receipt Date: 20031117
  Transmission Date: 20050107
  Serious: No
  Sender: FDA-Public Use
  Company Number: US-GLAXOSMITHKLINE-A0439968A

PATIENT
  Age: 65 Year
  Sex: Male

DRUGS (5)
  1. ALBUTEROL [Suspect]
     Indication: BRONCHOSPASM
     Dosage: 2PUFF THREE TIMES PER DAY
     Route: 055
  2. THEO-DUR [Concomitant]
  3. CELEBREX [Concomitant]
  4. PREVACID [Concomitant]
  5. MONOPRIL [Concomitant]

REACTIONS (1)
  - DRUG INEFFECTIVE [None]
